FAERS Safety Report 8165890-8 (Version None)
Quarter: 2012Q1

REPORT INFORMATION
  Report Type: 
  Country: None (occurrence: None)
  Receive Date: 20120227
  Receipt Date: 20111106
  Transmission Date: 20120608
  Serious: Yes (Other)
  Sender: FDA-Public Use
  Company Number: US-MYLANLABS-2011S1022900

PATIENT
  Sex: Male

DRUGS (4)
  1. ACCUTANE [Suspect]
     Indication: ACNE
     Route: 048
     Dates: start: 20031201, end: 20040101
  2. AMNESTEEM [Suspect]
     Indication: ACNE
     Route: 048
     Dates: start: 20040101, end: 20040901
  3. ISOTRETINOIN [Suspect]
     Indication: ACNE
     Route: 048
     Dates: start: 20060701, end: 20060801
  4. SOTRET [Suspect]
     Indication: ACNE
     Route: 048
     Dates: start: 20060301, end: 20060601

REACTIONS (1)
  - INFLAMMATORY BOWEL DISEASE [None]
